FAERS Safety Report 22031564 (Version 2)
Quarter: 2023Q2

REPORT INFORMATION
  Report Type: Report from Study
  Country: ES (occurrence: ES)
  Receive Date: 20230224
  Receipt Date: 20230415
  Transmission Date: 20230722
  Serious: Yes (Hospitalization, Other)
  Sender: FDA-Public Use
  Company Number: ES-ABBVIE-4263825

PATIENT
  Age: 72 Year
  Sex: Female
  Weight: 56 kg

DRUGS (6)
  1. CARBIDOPA\LEVODOPA [Suspect]
     Active Substance: CARBIDOPA\LEVODOPA
     Indication: Parkinson^s disease
     Dosage: CONTINUOUS DOSE 4.2 ML/ HOUR, EXTRA DOSE 5.4 ML
     Route: 050
     Dates: start: 202301, end: 202302
  2. CARBIDOPA\LEVODOPA [Suspect]
     Active Substance: CARBIDOPA\LEVODOPA
     Dosage: CONTINUOUS DOSE 4.4 ML/ HOUR, EXTRA DOSE 5.4 ML
     Route: 050
     Dates: start: 202301, end: 202301
  3. CARBIDOPA\LEVODOPA [Suspect]
     Active Substance: CARBIDOPA\LEVODOPA
     Dosage: CONTINUOUS DOSE 4 ML/ HOUR, EXTRA DOSE 5 ML
     Route: 050
     Dates: start: 20221021, end: 202301
  4. ONGENTYS [Concomitant]
     Active Substance: OPICAPONE
     Indication: Product used for unknown indication
  5. RIVOTRIL [Concomitant]
     Active Substance: CLONAZEPAM
     Indication: Product used for unknown indication
  6. BENSERAZIDE HYDROCHLORIDE\LEVODOPA [Concomitant]
     Active Substance: BENSERAZIDE HYDROCHLORIDE\LEVODOPA
     Indication: Parkinson^s disease
     Dosage: HALF TABLET
     Route: 048

REACTIONS (40)
  - Polyneuropathy [Not Recovered/Not Resolved]
  - Foot deformity [Not Recovered/Not Resolved]
  - Device difficult to use [Not Recovered/Not Resolved]
  - Musculoskeletal stiffness [Not Recovered/Not Resolved]
  - Asthenia [Not Recovered/Not Resolved]
  - Ankle deformity [Not Recovered/Not Resolved]
  - Pain in extremity [Not Recovered/Not Resolved]
  - Medical device removal [Unknown]
  - Pain in extremity [Not Recovered/Not Resolved]
  - Intentional medical device removal by patient [Unknown]
  - Joint range of motion decreased [Not Recovered/Not Resolved]
  - Hypoaesthesia [Recovering/Resolving]
  - Fall [Not Recovered/Not Resolved]
  - Insomnia [Not Recovered/Not Resolved]
  - Hypotonia [Not Recovered/Not Resolved]
  - Stoma site discharge [Not Recovered/Not Resolved]
  - Hallucination, visual [Not Recovered/Not Resolved]
  - Fall [Recovered/Resolved]
  - Therapeutic product effect incomplete [Unknown]
  - Musculoskeletal disorder [Not Recovered/Not Resolved]
  - Agitation [Not Recovered/Not Resolved]
  - Device occlusion [Unknown]
  - Hypophagia [Not Recovered/Not Resolved]
  - Gait inability [Not Recovered/Not Resolved]
  - Hallucination [Not Recovered/Not Resolved]
  - Aggression [Not Recovered/Not Resolved]
  - Unevaluable event [Not Recovered/Not Resolved]
  - Stoma site haemorrhage [Not Recovered/Not Resolved]
  - Paralysis [Recovered/Resolved]
  - Freezing phenomenon [Unknown]
  - Dyskinesia [Unknown]
  - Guillain-Barre syndrome [Not Recovered/Not Resolved]
  - Hypophagia [Not Recovered/Not Resolved]
  - Panic attack [Not Recovered/Not Resolved]
  - Device leakage [Not Recovered/Not Resolved]
  - Speech disorder [Not Recovered/Not Resolved]
  - Dyskinesia [Recovered/Resolved]
  - Unevaluable event [Not Recovered/Not Resolved]
  - General physical health deterioration [Unknown]
  - Psychotic disorder [Not Recovered/Not Resolved]

NARRATIVE: CASE EVENT DATE: 20221101
